FAERS Safety Report 8848965 (Version 1)
Quarter: 2012Q4

REPORT INFORMATION
  Report Type: 
  Country: US (occurrence: US)
  Receive Date: 20121019
  Receipt Date: 20121019
  Transmission Date: 20130627
  Serious: Yes (Other)
  Sender: FDA-Public Use
  Company Number: US-ELI_LILLY_AND_COMPANY-US201210002807

PATIENT
  Sex: Female

DRUGS (4)
  1. CYMBALTA [Suspect]
     Dosage: 30mg, each morning
  2. CYMBALTA [Suspect]
     Dosage: 30mg, each evening
  3. VICODIN [Concomitant]
  4. SYNTHROID [Concomitant]
     Indication: THYROID DISORDER

REACTIONS (4)
  - Chest pain [Unknown]
  - Painful respiration [Unknown]
  - Pain in extremity [Unknown]
  - Somnolence [Unknown]
